FAERS Safety Report 12194075 (Version 1)
Quarter: 2016Q1

REPORT INFORMATION
  Report Type: Spontaneous
  Country: US (occurrence: None)
  Receive Date: 20160318
  Receipt Date: 20160318
  Transmission Date: 20160526
  Serious: Yes (Death)
  Sender: FDA-Public Use
  Company Number: None

PATIENT
  Age: 26 Year
  Sex: Male

DRUGS (2)
  1. PULMOZYME [Suspect]
     Active Substance: DORNASE ALFA
     Indication: CYSTIC FIBROSIS
     Dosage: 1 VIAL BID RESPIRATORY
     Route: 055
     Dates: start: 20150122
  2. PROAIR HFA [Suspect]
     Active Substance: ALBUTEROL SULFATE
     Indication: CYSTIC FIBROSIS
     Dosage: 1 PUFF PRN/AS NEEDED RESPIRATORY
     Route: 055
     Dates: start: 20150224

REACTIONS (1)
  - Death [None]

NARRATIVE: CASE EVENT DATE: 20160316
